FAERS Safety Report 13286305 (Version 1)
Quarter: 2017Q1

REPORT INFORMATION
  Report Type: Spontaneous
  Country: JP (occurrence: JP)
  Receive Date: 20170301
  Receipt Date: 20170301
  Transmission Date: 20170428
  Serious: Yes (Hospitalization, Other)
  Sender: FDA-Public Use
  Company Number: GXJP2017JP000618

PATIENT
  Age: 77 Year
  Sex: Male

DRUGS (1)
  1. CEFTRIAXONE NA FOR INTRAVENOUS INJECTION [Suspect]
     Active Substance: CEFTRIAXONE
     Indication: INFECTIVE AORTITIS
     Dosage: 2 G, QD
     Route: 042

REACTIONS (5)
  - Abdominal pain upper [Unknown]
  - Cholecystitis acute [Unknown]
  - Vomiting [Unknown]
  - Bile duct stone [Unknown]
  - Cholelithiasis [Unknown]
